FAERS Safety Report 9402725 (Version 6)
Quarter: 2014Q2

REPORT INFORMATION
  Report Type: Report from Study
  Country: GB (occurrence: GB)
  Receive Date: 20130716
  Receipt Date: 20140625
  Transmission Date: 20141212
  Serious: Yes (Hospitalization, Other)
  Sender: FDA-Public Use
  Company Number: GB-TEVA-418592USA

PATIENT
  Age: 88 Year
  Sex: Male

DRUGS (15)
  1. BENDAMUSTINE [Suspect]
     Indication: NON-HODGKIN^S LYMPHOMA
     Dosage: EVERY 4 WEEKS
     Route: 042
     Dates: start: 20130613
  2. BENDAMUSTINE [Suspect]
     Route: 042
     Dates: start: 20130614
  3. RITUXIMAB [Suspect]
     Indication: NON-HODGKIN^S LYMPHOMA
     Dosage: VOLUME OF 500 ML CONCENTRATION OF 1.58 MG/ML
     Route: 042
     Dates: start: 20130613
  4. FRUSEMIDE [Concomitant]
  5. RASBURICASE [Concomitant]
     Dates: start: 20130613, end: 20130614
  6. PARACETAMOL [Concomitant]
     Dates: start: 20130613, end: 20130628
  7. CHLORPHENIRAMINE [Concomitant]
     Dates: start: 20130613, end: 20130613
  8. ONDANSETRON [Concomitant]
     Dates: start: 20130613, end: 20130614
  9. ALLOPURINOL [Concomitant]
     Dates: start: 20130615
  10. ALLOPURINOL [Concomitant]
     Dates: start: 20130723, end: 20130723
  11. CHLORPHENIRAMINE [Concomitant]
     Dates: start: 20130613, end: 20130613
  12. DOMPERIDONE [Concomitant]
     Dates: start: 20130613, end: 20130617
  13. ACICLOVIR [Concomitant]
     Dates: start: 20130613
  14. FLUCONAZOL [Concomitant]
     Dates: start: 20130613
  15. CO-TRIMOXAZOLE [Concomitant]
     Dates: start: 20130613, end: 20130718

REACTIONS (4)
  - Atrial fibrillation [Unknown]
  - Hypotension [Unknown]
  - Sepsis [Recovered/Resolved]
  - Lung infection [Unknown]
